FAERS Safety Report 5738988-9 (Version None)
Quarter: 2008Q2

REPORT INFORMATION
  Report Type: 
  Country: None (occurrence: None)
  Receive Date: 20080515
  Receipt Date: 20080507
  Transmission Date: 20081010
  Serious: Yes (Hospitalization)
  Sender: FDA-Public Use
  Company Number: GB-ROCHE-563074

PATIENT
  Sex: Female
  Weight: 101.6 kg

DRUGS (12)
  1. ORLISTAT [Suspect]
     Indication: OBESITY
     Route: 048
     Dates: start: 20080421, end: 20080428
  2. ORLISTAT [Suspect]
     Route: 048
     Dates: start: 20050309, end: 20050602
  3. CANDESARTAN [Concomitant]
     Indication: HYPERTENSION
     Route: 048
     Dates: start: 20070601
  4. AMLODIPINE [Concomitant]
     Indication: HYPERTENSION
     Route: 048
     Dates: start: 20070601
  5. OMEPRAZOLE [Concomitant]
     Route: 048
     Dates: start: 20070101
  6. METFORMIN HCL [Concomitant]
     Route: 048
     Dates: start: 20070601
  7. SIMVASTATIN [Concomitant]
     Route: 048
     Dates: start: 20050101
  8. CHLORPHENAMINE [Concomitant]
     Route: 048
     Dates: start: 20020101
  9. ASPIRIN [Concomitant]
     Route: 048
     Dates: start: 20020101
  10. XALATAN [Concomitant]
     Indication: GLAUCOMA
     Dosage: REPORTED AS ZALATAN (0.005%)
     Route: 047
     Dates: start: 20060101
  11. SALAMOL [Concomitant]
     Indication: ASTHMA
  12. BECLOMETHASONE DIPROPIONATE [Concomitant]
     Indication: ASTHMA
     Dosage: 50 UG DOSE

REACTIONS (2)
  - CHEST DISCOMFORT [None]
  - DYSPNOEA [None]
